FAERS Safety Report 9036572 (Version 1)
Quarter: 2013Q1

REPORT INFORMATION
  Report Type: Report from Study
  Country: US (occurrence: US)
  Receive Date: 20130129
  Receipt Date: 20130129
  Transmission Date: 20140127
  Serious: No
  Sender: FDA-Public Use
  Company Number: US-ABBOTT-12P-163-0888933-00

PATIENT
  Age: 81 Year
  Sex: Male

DRUGS (5)
  1. HUMIRA 40 MG/0.8 ML PEN [Suspect]
     Indication: PSORIATIC ARTHROPATHY
     Dates: start: 2007
  2. LIPITOR [Concomitant]
     Indication: BLOOD CHOLESTEROL INCREASED
  3. VERAPAMIL [Concomitant]
     Indication: CARDIAC DISORDER
  4. ENALAPRIL [Concomitant]
     Indication: CARDIAC DISORDER
  5. ASA [Concomitant]
     Indication: PROPHYLAXIS

REACTIONS (4)
  - Dental fistula [Recovering/Resolving]
  - Oral pain [Recovering/Resolving]
  - Aphthous stomatitis [Recovering/Resolving]
  - Lip swelling [Unknown]
